FAERS Safety Report 7875659-7 (Version None)
Quarter: 2011Q4

REPORT INFORMATION
  Report Type: 
  Country: None (occurrence: None)
  Receive Date: 20111031
  Receipt Date: 20111026
  Transmission Date: 20120403
  Serious: Yes (Life-Threatening, Hospitalization)
  Sender: FDA-Public Use
  Company Number: US-JNJFOC-20111012113

PATIENT
  Sex: Male
  Weight: 31.84 kg

DRUGS (1)
  1. ZYTIGA [Suspect]
     Indication: PROSTATE CANCER
     Dosage: 1000 MG TOTAL
     Route: 048

REACTIONS (1)
  - RESPIRATORY ARREST [None]
